FAERS Safety Report 21795774 (Version 1)
Quarter: 2022Q4

REPORT INFORMATION
  Report Type: Spontaneous
  Country: US (occurrence: US)
  Receive Date: 20221229
  Receipt Date: 20221229
  Transmission Date: 20230113
  Serious: Yes (Other)
  Sender: FDA-Public Use
  Company Number: US-BRISTOL-MYERS SQUIBB COMPANY-2022-160327

PATIENT
  Age: 86 Year
  Sex: Male
  Weight: 125 kg

DRUGS (2)
  1. REVLIMID [Suspect]
     Active Substance: LENALIDOMIDE
     Indication: Myelodysplastic syndrome
     Dosage: DOSE : 5MG;     FREQ : DAILY CONTINUOUS|CHANGING TO 21 DAYS ON 7 DAYS OFF WHICH WOULD BE OLU.
     Route: 048
  2. REVLIMID [Suspect]
     Active Substance: LENALIDOMIDE
     Dosage: DOSE : 5MG;     FREQ : DAILY CONTINUOUS|CHANGING TO 21 DAYS ON 7 DAYS OFF WHICH WOULD BE OLU.
     Route: 048

REACTIONS (2)
  - Malignant neoplasm progression [Unknown]
  - Off label use [Unknown]

NARRATIVE: CASE EVENT DATE: 20221201
